FAERS Safety Report 5345558-3 (Version None)
Quarter: 2007Q2

REPORT INFORMATION
  Report Type: 
  Country: None (occurrence: None)
  Receive Date: 20070601
  Receipt Date: 20070601
  Transmission Date: 20071010
  Serious: Yes (Hospitalization)
  Sender: FDA-Public Use
  Company Number: None

PATIENT
  Sex: Male
  Weight: 86 kg

DRUGS (2)
  1. TEMOZOLOMIDE [Suspect]
     Dosage: 4000 MG
  2. DEXAMETHASONE 0.5MG TAB [Concomitant]

REACTIONS (2)
  - SEPTIC SHOCK [None]
  - STREPTOCOCCAL INFECTION [None]
